FAERS Safety Report 21180947 (Version 1)
Quarter: 2022Q3

REPORT INFORMATION
  Report Type: Spontaneous
  Country: US (occurrence: US)
  Receive Date: 20220806
  Receipt Date: 20220806
  Transmission Date: 20221027
  Serious: No
  Sender: FDA-Public Use
  Company Number: US-SA-SAC20220729001759

PATIENT
  Age: 39 Year
  Sex: Female

DRUGS (2)
  1. AUBAGIO [Suspect]
     Active Substance: TERIFLUNOMIDE
     Indication: Multiple sclerosis
     Dosage: 14 MG, QD
     Route: 048
     Dates: start: 20220322
  2. TAMOXIFEN [Suspect]
     Active Substance: TAMOXIFEN

REACTIONS (5)
  - Fatigue [Unknown]
  - Hypoaesthesia [Unknown]
  - Depression [Unknown]
  - Alopecia [Unknown]
  - Diarrhoea [Unknown]

NARRATIVE: CASE EVENT DATE: 20220701
